FAERS Safety Report 5198697-4 (Version None)
Quarter: 2007Q1

REPORT INFORMATION
  Report Type: 
  Country: None (occurrence: None)
  Receive Date: 20070104
  Receipt Date: 20061205
  Transmission Date: 20070707
  Serious: Yes (Hospitalization)
  Sender: FDA-Public Use
  Company Number: 2006SE06583

PATIENT
  Age: 19593 Day
  Sex: Male

DRUGS (1)
  1. SEROQUEL [Suspect]
     Route: 048
     Dates: start: 20060914, end: 20061130

REACTIONS (1)
  - ANKLE FRACTURE [None]
